FAERS Safety Report 26185586 (Version 1)
Quarter: 2025Q4

REPORT INFORMATION
  Report Type: Spontaneous
  Country: EU (occurrence: EU)
  Receive Date: 20251222
  Receipt Date: 20251222
  Transmission Date: 20260118
  Serious: Yes (Hospitalization)
  Sender: OCTAPHARMA
  Company Number: EU-OCTA-2025001162

PATIENT
  Age: 10 Month
  Sex: Male

DRUGS (3)
  1. OCTAPLAS LG [Suspect]
     Active Substance: PLASMA PROTEIN FRACTION (HUMAN)
     Indication: Haemorrhage
     Dosage: BLOOD GROUP AB AND O
     Route: 042
     Dates: start: 20251208, end: 20251208
  2. OCTAPLAS LG [Suspect]
     Active Substance: PLASMA PROTEIN FRACTION (HUMAN)
     Dosage: BLOOD GROUP O
     Route: 042
     Dates: start: 20251209, end: 20251210
  3. OCTAPLAS LG [Suspect]
     Active Substance: PLASMA PROTEIN FRACTION (HUMAN)
     Dosage: BLOOD GROUP AB AND O
     Route: 042
     Dates: start: 20251208, end: 20251208

REACTIONS (6)
  - Transfusion-related acute lung injury [Unknown]
  - Transfusion-related circulatory overload [Unknown]
  - Shock [Unknown]
  - Restlessness [Unknown]
  - Dyspnoea [Unknown]
  - Pulmonary oedema [Unknown]

NARRATIVE: CASE EVENT DATE: 20251209
